FAERS Safety Report 16144415 (Version 1)
Quarter: 2019Q2

REPORT INFORMATION
  Report Type: Spontaneous
  Country: CA (occurrence: CA)
  Receive Date: 20190401
  Receipt Date: 20190401
  Transmission Date: 20190711
  Serious: Yes (Other)
  Sender: FDA-Public Use
  Company Number: CA-BAXTER-2019BAX006285

PATIENT
  Age: 82 Year
  Sex: Female

DRUGS (1)
  1. 0.9% SODIUM CHLORIDE INJECTION [Suspect]
     Active Substance: SODIUM CHLORIDE
     Indication: PRODUCT USED FOR UNKNOWN INDICATION
     Dosage: VIA CENTRAL VENOUS CATHETER AND REVACLEAR 300 DIALYZER
     Route: 040
     Dates: start: 20190319

REACTIONS (4)
  - Blood pressure decreased [Unknown]
  - Pulse absent [Unknown]
  - Unresponsive to stimuli [Recovering/Resolving]
  - Chills [Unknown]

NARRATIVE: CASE EVENT DATE: 20190319
